FAERS Safety Report 17202479 (Version 1)
Quarter: 2019Q4

REPORT INFORMATION
  Report Type: Spontaneous
  Country: FR (occurrence: FR)
  Receive Date: 20191226
  Receipt Date: 20191226
  Transmission Date: 20200122
  Serious: Yes (Hospitalization)
  Sender: FDA-Public Use
  Company Number: FR-BAXTER-2019BAX025837

PATIENT
  Age: 54 Year
  Sex: Female
  Weight: 64 kg

DRUGS (17)
  1. METRONIDAZOLE BAXTER 0,5 POUR CENT, SOLUTION INJECTABLE EN POCHE [Suspect]
     Active Substance: METRONIDAZOLE
     Indication: LUNG DISORDER
     Dosage: METRONIDAZOLE BAXTER 0.5 PERCENT, SOLUTION FOR INJECTION IN A BAG, DOSE NOT REPORTED
     Route: 042
     Dates: start: 20191125, end: 20191126
  2. CEFOTAXIME [Suspect]
     Active Substance: CEFOTAXIME SODIUM
     Indication: SEPTIC SHOCK
     Dosage: DOSE NOT REPORTED, CEFOTAXIME MYLAN 1 G, POWDER FOR SOLUTION FOR INJECTION (IM/IV)
     Route: 042
     Dates: start: 20191125, end: 20191126
  3. AUGMENTIN [Concomitant]
     Active Substance: AMOXICILLIN\CLAVULANATE POTASSIUM
     Indication: PRODUCT USED FOR UNKNOWN INDICATION
     Route: 065
  4. NORADRENALINE MYLAN [Suspect]
     Active Substance: NOREPINEPHRINE\NOREPINEPHRINE BITARTRATE
     Indication: HAEMODYNAMIC INSTABILITY
     Dosage: 6 MG/HOUR
     Route: 042
     Dates: start: 20191124, end: 20191125
  5. HYDROCORTISONE. [Suspect]
     Active Substance: HYDROCORTISONE
     Indication: SHOCK
     Dosage: DOSE NOT REPORTED
     Route: 065
     Dates: start: 20191124, end: 20191125
  6. LOVENOX [Concomitant]
     Active Substance: ENOXAPARIN SODIUM
     Indication: PRODUCT USED FOR UNKNOWN INDICATION
     Route: 065
  7. XENETIX [Suspect]
     Active Substance: IOBITRIDOL
     Indication: COMPUTERISED TOMOGRAM
     Dosage: DOSE NOT REPORTED, XENETIX 350 (350 MG IODINE/ML), SOLUTION FOR INJECTION
     Route: 042
     Dates: start: 20191124, end: 20191124
  8. SUFENTANIL MYLAN [Suspect]
     Active Substance: SUFENTANIL
     Indication: SEDATIVE THERAPY
     Dosage: DOSE NOT REPORTED
     Route: 042
     Dates: start: 20191124, end: 20191125
  9. LEVETIRACETAM ARROW [Concomitant]
     Active Substance: LEVETIRACETAM
     Indication: PRODUCT USED FOR UNKNOWN INDICATION
     Dosage: FILM COATED TABLES
     Route: 065
  10. PIPERACILLINE TAZOBACTAM MYLAN [Suspect]
     Active Substance: PIPERACILLIN SODIUM\TAZOBACTAM SODIUM
     Indication: SEPTIC SHOCK
     Dosage: DOSE NOT REPORTED
     Route: 042
     Dates: start: 20191124, end: 20191125
  11. FLUDROCORTISONE [Suspect]
     Active Substance: FLUDROCORTISONE
     Indication: SHOCK
     Dosage: DOSE NOT REPORTED
     Route: 048
     Dates: start: 20191124, end: 20191125
  12. AMLOR [Concomitant]
     Active Substance: AMLODIPINE BESYLATE
     Indication: PRODUCT USED FOR UNKNOWN INDICATION
     Route: 065
  13. MIDAZOLAM [Suspect]
     Active Substance: MIDAZOLAM HYDROCHLORIDE
     Indication: SEDATIVE THERAPY
     Dosage: DOSE NOT REPORTED
     Route: 042
     Dates: start: 20191124, end: 20191125
  14. IOMERON [Suspect]
     Active Substance: IOMEPROL
     Indication: COMPUTERISED TOMOGRAM
     Dosage: IOMERON 350 (350 MG IODINE/ML), SOLUTION FOR INJECTION
     Route: 042
     Dates: start: 20191125, end: 20191125
  15. HYPNOMIDATE [Suspect]
     Indication: SEDATIVE THERAPY
     Dosage: DOSE NOT REPORTED
     Route: 042
     Dates: start: 20191124, end: 20191125
  16. CELOCURINE [Suspect]
     Active Substance: SUCCINYLCHOLINE
     Indication: NEUROMUSCULAR BLOCKING THERAPY
     Dosage: DOSE NOT REPORTED
     Route: 042
     Dates: start: 20191124, end: 20191125
  17. URBANYL [Concomitant]
     Active Substance: CLOBAZAM
     Indication: PRODUCT USED FOR UNKNOWN INDICATION
     Dosage: URBANYL 5 MG, CAPSULE
     Route: 065

REACTIONS (1)
  - Dermatitis bullous [Recovering/Resolving]

NARRATIVE: CASE EVENT DATE: 20191126
